FAERS Safety Report 6602462-8 (Version None)
Quarter: 2010Q2

REPORT INFORMATION
  Report Type: 
  Country: None (occurrence: None)
  Receive Date: 20100225
  Receipt Date: 20100216
  Transmission Date: 20101027
  Serious: Yes (Hospitalization)
  Sender: FDA-Public Use
  Company Number: US-JNJFOC-20100208065

PATIENT
  Age: 2 Month
  Sex: Female
  Weight: 3.63 kg

DRUGS (2)
  1. CONCENTRATED TYLENOL INFANT DROPS [Suspect]
  2. CONCENTRATED TYLENOL INFANT DROPS [Suspect]
     Indication: PYREXIA

REACTIONS (2)
  - ESCHERICHIA INFECTION [None]
  - TRANSMISSION OF AN INFECTIOUS AGENT VIA A MEDICINAL PRODUCT [None]
